FAERS Safety Report 17703561 (Version 2)
Quarter: 2020Q2

REPORT INFORMATION
  Report Type: Report from Study
  Country: None (occurrence: CO)
  Receive Date: 20200424
  Receipt Date: 20200528
  Transmission Date: 20200714
  Serious: Yes (Other)
  Sender: FDA-Public Use
  Company Number: CO-ABBVIE-20K-036-3377384-00

PATIENT
  Age: 54 Year
  Sex: Female
  Weight: 58 kg

DRUGS (1)
  1. HUMIRA [Suspect]
     Active Substance: ADALIMUMAB
     Indication: RHEUMATOID ARTHRITIS
     Route: 058
     Dates: start: 20191002, end: 20200325

REACTIONS (13)
  - Malaise [Unknown]
  - Aphasia [Unknown]
  - Chest pain [Unknown]
  - Dizziness [Unknown]
  - Injection site rash [Unknown]
  - Syncope [Unknown]
  - Loss of consciousness [Unknown]
  - Abdominal distension [Unknown]
  - Gait inability [Unknown]
  - Back pain [Recovering/Resolving]
  - Abdominal pain upper [Unknown]
  - Drug hypersensitivity [Unknown]
  - Discomfort [Unknown]

NARRATIVE: CASE EVENT DATE: 20200311
